FAERS Safety Report 9397635 (Version 1)
Quarter: 2013Q3

REPORT INFORMATION
  Report Type: Spontaneous
  Country: US (occurrence: US)
  Receive Date: 20130712
  Receipt Date: 20130712
  Transmission Date: 20140515
  Serious: Yes (Other)
  Sender: FDA-Public Use
  Company Number: US-AMGEN-USASP2013048687

PATIENT
  Age: 77 Year
  Sex: Female

DRUGS (4)
  1. PROLIA [Suspect]
     Indication: OSTEOPOROSIS
     Dosage: UNK
     Dates: start: 201301
  2. RESTASIS [Concomitant]
  3. MOBIC [Concomitant]
  4. POTASSIUM [Concomitant]

REACTIONS (2)
  - Urinary tract infection [Unknown]
  - Arrhythmia [Unknown]
